FAERS Safety Report 16265371 (Version 2)
Quarter: 2019Q2

REPORT INFORMATION
  Report Type: Spontaneous
  Country: US (occurrence: US)
  Receive Date: 20190502
  Receipt Date: 20190520
  Transmission Date: 20190711
  Serious: No
  Sender: FDA-Public Use
  Company Number: US-PFIZER INC-2019165345

PATIENT
  Age: 53 Year

DRUGS (1)
  1. LYRICA CR [Suspect]
     Active Substance: PREGABALIN
     Dosage: 300 MG, 3X/DAY (ONE TABLET EVERY 8 HOURS AND SOMETIMES I TAKE MAYBE TWO IN THE MORNING)
     Route: 048

REACTIONS (3)
  - Nerve injury [Unknown]
  - Hypoaesthesia [Unknown]
  - Prescribed overdose [Unknown]
